FAERS Safety Report 7597685-8 (Version None)
Quarter: 2011Q3

REPORT INFORMATION
  Report Type: 
  Country: None (occurrence: None)
  Receive Date: 20110708
  Receipt Date: 20110615
  Transmission Date: 20111222
  Serious: Yes (Hospitalization)
  Sender: FDA-Public Use
  Company Number: US-GLAXOSMITHKLINE-A0863751A

PATIENT
  Age: 60 Year
  Sex: Female
  Weight: 65 kg

DRUGS (5)
  1. AVANDIA [Suspect]
     Indication: DIABETES MELLITUS
     Route: 048
     Dates: start: 19990101
  2. CLIMARA [Concomitant]
  3. GLUCOTROL [Concomitant]
  4. CLARITIN [Concomitant]
  5. LIPITOR [Concomitant]

REACTIONS (3)
  - CORONARY ARTERY DISEASE [None]
  - ISCHAEMIC CARDIOMYOPATHY [None]
  - MYOCARDIAL INFARCTION [None]
